FAERS Safety Report 14232645 (Version 1)
Quarter: 2017Q4

REPORT INFORMATION
  Report Type: Spontaneous
  Country: US (occurrence: US)
  Receive Date: 20171128
  Receipt Date: 20171128
  Transmission Date: 20180321
  Serious: No
  Sender: FDA-Public Use
  Company Number: US-JNJFOC-20171103873

PATIENT
  Age: 69 Year
  Sex: Female
  Weight: 31.75 kg

DRUGS (3)
  1. NEUTROGENA T-CELL SHAMPOO [Concomitant]
     Indication: PRODUCT USED FOR UNKNOWN INDICATION
     Route: 065
  2. MENS ROGAINE EXTRA STRENGTH [Suspect]
     Active Substance: MINOXIDIL
     Route: 061
  3. MENS ROGAINE EXTRA STRENGTH [Suspect]
     Active Substance: MINOXIDIL
     Indication: ALOPECIA
     Dosage: A BLOB, ONCE DAILY.
     Route: 061
     Dates: start: 20170928

REACTIONS (5)
  - Medication residue present [Not Recovered/Not Resolved]
  - Off label use [Unknown]
  - Seborrhoea [Not Recovered/Not Resolved]
  - Product use issue [Unknown]
  - Contraindicated product administered [Unknown]

NARRATIVE: CASE EVENT DATE: 20170928
